FAERS Safety Report 22637480 (Version 1)
Quarter: 2023Q2

REPORT INFORMATION
  Report Type: Spontaneous
  Country: US (occurrence: None)
  Receive Date: 20230623
  Receipt Date: 20230623
  Transmission Date: 20230722
  Serious: No
  Sender: FDA-Public Use
  Company Number: None

PATIENT

DRUGS (2)
  1. GLUCAGON [Suspect]
     Active Substance: GLUCAGON
  2. GLUCAGON [Suspect]
     Active Substance: GLUCAGON

REACTIONS (1)
  - Product formulation issue [None]
